FAERS Safety Report 5809542-5 (Version None)
Quarter: 2008Q3

REPORT INFORMATION
  Report Type: 
  Country: None (occurrence: None)
  Receive Date: 20080709
  Receipt Date: 20080626
  Transmission Date: 20090109
  Serious: No
  Sender: FDA-Public Use
  Company Number: 2008S1011136

PATIENT
  Age: 63 Year
  Sex: Female

DRUGS (13)
  1. CIPROFLOXACIN [Suspect]
     Indication: DRUG USE FOR UNKNOWN INDICATION
     Dates: start: 20030607, end: 20080617
  2. AMILORIDE (AMILORIDE) (CON.) [Concomitant]
  3. BUMETANIDE (BUMETANIDE) (CON.) [Concomitant]
  4. MERCK-CARBOCYSTEINE (CARBOCISTEINE) (CON.) [Concomitant]
  5. LEVOTHYROXINE SODIUM (LEVOTHYROXINE SODIUM) (CON.) [Concomitant]
  6. MORPHINE (MORPHINE) (CON.) [Concomitant]
  7. SALBUTAMOL (SALBUTAMOL) (CON.) [Concomitant]
  8. SERETIDE /01420901/ (SERETIDE /01420901/) (CON.) [Concomitant]
  9. SIMVASTATIN (SIMVASTATIN) (CON.) [Concomitant]
  10. TIOTROPIUM BROMIDE (TIOTROPIUM BROMIDE) (CON.) [Concomitant]
  11. VERAPAMIL (VERAPAMIL) (CON.) [Concomitant]
  12. WARFARIN SODIUM (WARFARIN SODIUM) (CON.) [Concomitant]
  13. TRAMADOL HYDROCHLORIDE (TRAMADOL HYDROCHLORIDE) (CON.) [Concomitant]

REACTIONS (4)
  - LIP SWELLING [None]
  - RASH [None]
  - SKIN LESION [None]
  - SKIN ULCER [None]
